FAERS Safety Report 4955367-2 (Version None)
Quarter: 2006Q1

REPORT INFORMATION
  Report Type: 
  Country: None (occurrence: None)
  Receive Date: 20060322
  Receipt Date: 20060309
  Transmission Date: 20060701
  Serious: Yes (Other)
  Sender: FDA-Public Use
  Company Number: 2005088659

PATIENT
  Age: 91 Year
  Sex: Female
  Weight: 70.7611 kg

DRUGS (26)
  1. DETROL LA [Suspect]
     Indication: MICTURITION URGENCY
     Dosage: 4 MG (4 MG, 1 IN 1 D) ; ORAL
     Route: 048
     Dates: start: 20050101, end: 20050101
  2. DRUG, UNSPECIFIED [Concomitant]
  3. HYDROMORPHONE [Concomitant]
  4. FOSAMAX (ALLENDRONATE SODIUM) [Concomitant]
  5. FERROUS GLUCONATE [Concomitant]
  6. ASCORBIC ACID [Concomitant]
  7. HYDROCODONE BITARTRATE + ACETAMINOPHEN [Concomitant]
  8. NEURONTIN [Concomitant]
  9. PREVACID [Concomitant]
  10. FUROSEMIDE [Concomitant]
  11. DOXEPIN [Concomitant]
  12. ESTROPIPATE [Concomitant]
  13. LISINOPRIL [Concomitant]
  14. ACETYLSALICYLIC ACID SRT [Concomitant]
  15. ZOLOFT [Concomitant]
  16. QUININE SULFATE [Concomitant]
  17. TEMAZEPAM [Concomitant]
  18. ZYRTEC-D 12 HOUR [Concomitant]
  19. LIPITOR [Concomitant]
  20. TYLENOL [Concomitant]
  21. SENNA-GEN (SENNA) [Concomitant]
  22. GLUCOSAMINE W/CHONDROITIN SULFATES (ASCORBIC ACID, CHONDROITIN SULFATE [Concomitant]
  23. OSCAL 500-D (CALCIUM, COLECALCIFEROL) [Concomitant]
  24. VITAMIN E [Concomitant]
  25. CENTRUM SILVER (ASCORBIC ACID, CALCIUM, MINERALS NOS, RETINOL, TOCOPHE [Concomitant]
  26. BACTROBAN CREAM (MPIROCIN) [Concomitant]

REACTIONS (23)
  - ANAEMIA OF CHRONIC DISEASE [None]
  - AORTIC VALVE DISEASE [None]
  - BACK DISORDER [None]
  - CARDIAC FAILURE CONGESTIVE [None]
  - CELLULITIS [None]
  - CONDITION AGGRAVATED [None]
  - COUGH [None]
  - DEPRESSED MOOD [None]
  - DIABETES MELLITUS NON-INSULIN-DEPENDENT [None]
  - DIZZINESS [None]
  - DRY MOUTH [None]
  - ESSENTIAL HYPERTENSION [None]
  - FATIGUE [None]
  - HAND FRACTURE [None]
  - HYPERLIPIDAEMIA [None]
  - HYPERTONIC BLADDER [None]
  - OSTEOARTHRITIS [None]
  - SKIN ULCER [None]
  - SPINAL OSTEOARTHRITIS [None]
  - STOMACH DISCOMFORT [None]
  - TENSION HEADACHE [None]
  - URINARY INCONTINENCE [None]
  - VISION BLURRED [None]
